FAERS Safety Report 7080537-X (Version None)
Quarter: 2010Q4

REPORT INFORMATION
  Report Type: 
  Country: None (occurrence: None)
  Receive Date: 20101103
  Receipt Date: 20101027
  Transmission Date: 20110411
  Serious: Yes (Death)
  Sender: FDA-Public Use
  Company Number: JP-ASTRAZENECA-2010SE51562

PATIENT
  Age: 91 Year
  Sex: Female

DRUGS (2)
  1. SEROQUEL [Suspect]
     Route: 048
     Dates: start: 20080617
  2. SEROQUEL [Suspect]
     Route: 048

REACTIONS (3)
  - ARRHYTHMIA [None]
  - DEATH [None]
  - GASTROINTESTINAL HAEMORRHAGE [None]
